FAERS Safety Report 24834322 (Version 1)
Quarter: 2025Q1

REPORT INFORMATION
  Report Type: Report from Study
  Country: US (occurrence: US)
  Receive Date: 20250113
  Receipt Date: 20250113
  Transmission Date: 20250409
  Serious: Yes (Other)
  Sender: ABBVIE
  Company Number: US-ABBVIE-6045987

PATIENT
  Age: 68 Year
  Sex: Female
  Weight: 138.34 kg

DRUGS (1)
  1. RINVOQ [Suspect]
     Active Substance: UPADACITINIB
     Indication: Rheumatoid arthritis
     Dosage: FORM STRENGTH 15 MILLIGRAM
     Route: 048
     Dates: start: 20200722, end: 20241128

REACTIONS (12)
  - Eccrine carcinoma [Recovered/Resolved]
  - Fatigue [Recovering/Resolving]
  - Pulmonary thrombosis [Not Recovered/Not Resolved]
  - Thrombosis [Recovering/Resolving]
  - Dyspnoea [Recovering/Resolving]
  - Pneumonia [Recovered/Resolved]
  - Cough [Recovering/Resolving]
  - Oxygen saturation decreased [Recovering/Resolving]
  - Chest pain [Recovering/Resolving]
  - Nasal congestion [Recovering/Resolving]
  - Pneumonia [Recovered/Resolved]
  - Arthralgia [Unknown]

NARRATIVE: CASE EVENT DATE: 20220101
